FAERS Safety Report 4661809-2 (Version None)
Quarter: 2005Q2

REPORT INFORMATION
  Report Type: 
  Country: None (occurrence: None)
  Receive Date: 20050511
  Receipt Date: 20050511
  Transmission Date: 20051028
  Serious: Yes (Hospitalization)
  Sender: FDA-Public Use
  Company Number: None

PATIENT
  Age: 70 Year
  Sex: Male

DRUGS (12)
  1. METOLAZONE [Suspect]
     Indication: CARDIAC DISORDER
     Dosage: 5 MG QD
     Dates: start: 20041201
  2. FUROSEMIDE [Suspect]
     Indication: CARDIAC DISORDER
     Dosage: 40 MG AM AND 20 MG PM
     Dates: start: 20020901
  3. ZOCOR [Concomitant]
  4. LORATADINE [Concomitant]
  5. PLAVIX [Concomitant]
  6. GLYBURIDE [Concomitant]
  7. ISOSORBIDE [Concomitant]
  8. METOPRALOL [Concomitant]
  9. OMEPRAZOLE [Concomitant]
  10. ASPIRIN [Concomitant]
  11. LISINOPRIL [Concomitant]
  12. HYDRALAZINE HCL [Concomitant]

REACTIONS (1)
  - UNEVALUABLE EVENT [None]
